FAERS Safety Report 20552832 (Version 1)
Quarter: 2022Q1

REPORT INFORMATION
  Report Type: Spontaneous
  Country: US (occurrence: None)
  Receive Date: 20220304
  Receipt Date: 20220304
  Transmission Date: 20220424
  Serious: Yes (Hospitalization)
  Sender: FDA-Public Use
  Company Number: None

PATIENT
  Sex: Female
  Weight: 82.8 kg

DRUGS (2)
  1. XELODA [Suspect]
     Active Substance: CAPECITABINE
     Dates: end: 20220211
  2. ELOXATIN [Suspect]
     Active Substance: OXALIPLATIN
     Dates: end: 20220128

REACTIONS (4)
  - Diarrhoea [None]
  - Small intestinal obstruction [None]
  - Inflammatory bowel disease [None]
  - Intestinal ischaemia [None]

NARRATIVE: CASE EVENT DATE: 20220203
